FAERS Safety Report 7550106-3 (Version None)
Quarter: 2011Q2

REPORT INFORMATION
  Report Type: 
  Country: None (occurrence: None)
  Receive Date: 20110615
  Receipt Date: 20110606
  Transmission Date: 20111010
  Serious: Yes (Hospitalization)
  Sender: FDA-Public Use
  Company Number: JP-ASTRAZENECA-2011SE34775

PATIENT
  Sex: Female

DRUGS (1)
  1. MARCAINE [Suspect]
     Indication: NERVE BLOCK
     Route: 065

REACTIONS (4)
  - PALPITATIONS [None]
  - NAUSEA [None]
  - GAIT DISTURBANCE [None]
  - DIZZINESS [None]
